FAERS Safety Report 9964958 (Version 1)
Quarter: 2014Q1

REPORT INFORMATION
  Report Type: Report from Study
  Country: US (occurrence: US)
  Receive Date: 20140305
  Receipt Date: 20140305
  Transmission Date: 20141002
  Serious: No
  Sender: FDA-Public Use
  Company Number: US-ABBVIE-13P-163-1128209-00

PATIENT
  Age: 27 Year
  Sex: Male

DRUGS (5)
  1. HUMIRA [Suspect]
     Indication: CROHN^S DISEASE
     Route: 058
     Dates: start: 20130507
  2. SERTRALINE [Concomitant]
     Indication: DEPRESSION
  3. LORAZEPAM [Concomitant]
     Indication: PANIC ATTACK
     Dosage: BUT NOT LATELY
  4. TRAZODONE [Concomitant]
     Indication: INSOMNIA
     Dosage: THE MEDICATION ALSO CAUSES WEIRD DREAMS
  5. ASACOL [Concomitant]
     Indication: CROHN^S DISEASE

REACTIONS (2)
  - Osteoarthritis [Not Recovered/Not Resolved]
  - Headache [Not Recovered/Not Resolved]
